FAERS Safety Report 23527084 (Version 2)
Quarter: 2024Q2

REPORT INFORMATION
  Report Type: Spontaneous
  Country: US (occurrence: US)
  Receive Date: 20240215
  Receipt Date: 20240503
  Transmission Date: 20240716
  Serious: Yes (Hospitalization)
  Sender: FDA-Public Use
  Company Number: US-BRISTOL-MYERS SQUIBB COMPANY-2024-021485

PATIENT
  Age: 39 Year
  Sex: Female

DRUGS (2)
  1. IDHIFA [Suspect]
     Active Substance: ENASIDENIB MESYLATE
     Indication: Acute myeloid leukaemia
     Dosage: 1 TIME A DAY
     Route: 048
  2. XOSPATA [Concomitant]
     Active Substance: GILTERITINIB
     Indication: Product used for unknown indication

REACTIONS (1)
  - Hospitalisation [Unknown]
